FAERS Safety Report 9334693 (Version 1)
Quarter: 2013Q2

REPORT INFORMATION
  Report Type: Spontaneous
  Country: US (occurrence: US)
  Receive Date: 20130606
  Receipt Date: 20130606
  Transmission Date: 20140414
  Serious: No
  Sender: FDA-Public Use
  Company Number: US-AMGEN-USASP2013016098

PATIENT
  Age: 60 Year
  Sex: Female

DRUGS (4)
  1. PROLIA [Suspect]
     Indication: OSTEOPOROSIS POSTMENOPAUSAL
  2. AVAPRO [Concomitant]
  3. VYTORIN [Concomitant]
  4. BYETTA [Concomitant]

REACTIONS (1)
  - Pain in jaw [Not Recovered/Not Resolved]
